FAERS Safety Report 6149314-8 (Version None)
Quarter: 2009Q2

REPORT INFORMATION
  Report Type: 
  Country: None (occurrence: None)
  Receive Date: 20090406
  Receipt Date: 20090406
  Transmission Date: 20091009
  Serious: No
  Sender: FDA-Public Use
  Company Number: None

PATIENT
  Age: 69 Year
  Sex: Female
  Weight: 76.6579 kg

DRUGS (4)
  1. PLAVIX [Suspect]
     Indication: MYOCARDIAL INFARCTION
     Dosage: 75MG ONCE DAILY
     Dates: start: 20080914, end: 20081115
  2. PLAVIX [Suspect]
     Indication: STENT PLACEMENT
     Dosage: 75MG ONCE DAILY
     Dates: start: 20080914, end: 20081115
  3. PLAVIX [Suspect]
     Indication: MYOCARDIAL INFARCTION
     Dosage: 75MG ONCE DAILY
     Dates: start: 20090317
  4. PLAVIX [Suspect]
     Indication: STENT PLACEMENT
     Dosage: 75MG ONCE DAILY
     Dates: start: 20090317

REACTIONS (4)
  - CORONARY ARTERY OCCLUSION [None]
  - DRUG HYPERSENSITIVITY [None]
  - DYSGEUSIA [None]
  - WEIGHT DECREASED [None]
